FAERS Safety Report 19023848 (Version 3)
Quarter: 2021Q2

REPORT INFORMATION
  Report Type: Report from Study
  Country: None (occurrence: US)
  Receive Date: 20210317
  Receipt Date: 20210409
  Transmission Date: 20210717
  Serious: Yes (Hospitalization)
  Sender: FDA-Public Use
  Company Number: US-ABBVIE-21P-163-3801654-00

PATIENT
  Age: 67 Year
  Sex: Male

DRUGS (3)
  1. OBINUTUZUMAB. [Concomitant]
     Active Substance: OBINUTUZUMAB
     Indication: CHRONIC LYMPHOCYTIC LEUKAEMIA REFRACTORY
     Dosage: CYCLE 1 DAY 1, DAYS 1, 2, 8, AND 15 OF CYCLE 1 AND DAY 1 OF CYCLES 2?6.
     Route: 042
     Dates: start: 20201007
  2. VENETOCLAX. [Suspect]
     Active Substance: VENETOCLAX
     Indication: CHRONIC LYMPHOCYTIC LEUKAEMIA REFRACTORY
     Dosage: CYCLE 3 DAY 1, STARTING DOSE OF 20 MG/DAY FOR WEEK 1
     Route: 048
     Dates: start: 20201130
  3. ACALABRUTINIB. [Concomitant]
     Active Substance: ACALABRUTINIB
     Indication: CHRONIC LYMPHOCYTIC LEUKAEMIA REFRACTORY
     Route: 048
     Dates: start: 20201104

REACTIONS (1)
  - Skin infection [Recovered/Resolved]

NARRATIVE: CASE EVENT DATE: 20210225
